FAERS Safety Report 9971424 (Version 1)
Quarter: 2014Q1

REPORT INFORMATION
  Report Type: Spontaneous
  Country: US (occurrence: None)
  Receive Date: 20140304
  Receipt Date: 20140304
  Transmission Date: 20141002
  Serious: Yes (Hospitalization)
  Sender: FDA-Public Use
  Company Number: FK201400694

PATIENT
  Age: 31 Year
  Sex: Female

DRUGS (2)
  1. DOXORUBICIN (MANUFACTURER UNKNOWN) (DOXORUBICIN HYDROCHLORIDE) (DOXORUBICIN HYDROCHLORIDE) [Suspect]
     Indication: SPINDLE CELL SARCOMA
  2. IFOSFAMIDE (IFOSFAMIDE) [Concomitant]

REACTIONS (6)
  - Pericardial effusion [None]
  - Ejection fraction decreased [None]
  - Cardiac tamponade [None]
  - Febrile neutropenia [None]
  - Sepsis [None]
  - Cardiac failure [None]
